FAERS Safety Report 11429855 (Version 1)
Quarter: 2015Q3

REPORT INFORMATION
  Report Type: Spontaneous
  Country: US (occurrence: US)
  Receive Date: 20150828
  Receipt Date: 20150828
  Transmission Date: 20151125
  Serious: No
  Sender: FDA-Public Use
  Company Number: US-BAYER-2015-409866

PATIENT
  Age: 62 Year
  Sex: Female
  Weight: 83.9 kg

DRUGS (3)
  1. GLUCOSAMINE W/CHONDROITIN SULFATE [Concomitant]
     Active Substance: CHONDROITIN SULFATE (BOVINE)\GLUCOSAMINE SULFATE
     Route: 048
  2. VITAMIN D3 [Concomitant]
     Active Substance: CHOLECALCIFEROL
     Dosage: UNK
  3. ALEVE [Suspect]
     Active Substance: NAPROXEN SODIUM
     Indication: ARTHRITIS
     Dosage: UNK
     Route: 048
     Dates: start: 2013

REACTIONS (2)
  - Off label use [None]
  - Drug ineffective [None]

NARRATIVE: CASE EVENT DATE: 2013
